FAERS Safety Report 8128631-6 (Version None)
Quarter: 2012Q1

REPORT INFORMATION
  Report Type: 
  Country: None (occurrence: None)
  Receive Date: 20120210
  Receipt Date: 20120203
  Transmission Date: 20120608
  Serious: Yes (Hospitalization)
  Sender: FDA-Public Use
  Company Number: US-BAYER-2011-112447

PATIENT
  Age: 31 Year
  Sex: Female
  Weight: 89.342 kg

DRUGS (2)
  1. YASMIN [Suspect]
     Indication: CONTRACEPTION
     Dosage: UNK
     Route: 048
     Dates: start: 20050913, end: 20070126
  2. YAZ [Suspect]
     Indication: CONTRACEPTION
     Dosage: UNK
     Route: 048
     Dates: start: 20071129, end: 20091116

REACTIONS (5)
  - INJURY [None]
  - GALLBLADDER DISORDER [None]
  - HEADACHE [None]
  - NAUSEA [None]
  - CHOLELITHIASIS [None]
